FAERS Safety Report 6202575-9 (Version None)
Quarter: 2009Q2

REPORT INFORMATION
  Report Type: 
  Country: None (occurrence: None)
  Receive Date: 20090526
  Receipt Date: 20081205
  Transmission Date: 20091009
  Serious: Yes (Other)
  Sender: FDA-Public Use
  Company Number: US-PFIZER INC-2009156181

PATIENT
  Age: 69 Year

DRUGS (15)
  1. FLAGYL [Suspect]
  2. PHENOBARBITAL [Suspect]
     Indication: CONVULSION
  3. FLUCONAZOLE [Concomitant]
  4. THYROID TAB [Concomitant]
  5. IODINE [Concomitant]
  6. K-DUR [Concomitant]
  7. LOVAZA [Concomitant]
  8. SELENIUM [Concomitant]
  9. MAGNESIUM SULFATE [Concomitant]
  10. DHEA [Concomitant]
  11. TENORMIN [Concomitant]
  12. RESERPINE [Concomitant]
  13. HYDROCHLOROTHIAZIDE [Concomitant]
  14. VITAMINS [Concomitant]
  15. PREMARIN [Concomitant]

REACTIONS (2)
  - CONVULSION [None]
  - PARTIAL SEIZURES [None]
